FAERS Safety Report 20385137 (Version 5)
Quarter: 2023Q4

REPORT INFORMATION
  Report Type: Spontaneous
  Country: CA (occurrence: CA)
  Receive Date: 20220127
  Receipt Date: 20231002
  Transmission Date: 20240110
  Serious: Yes (Other)
  Sender: FDA-Public Use
  Company Number: CA-PFIZER INC-2020296217

PATIENT
  Age: 75 Year
  Sex: Female

DRUGS (4)
  1. SUTENT [Suspect]
     Active Substance: SUNITINIB MALATE
     Indication: Renal cell carcinoma
     Dosage: UNK
     Route: 048
     Dates: start: 20170426
  2. SUTENT [Suspect]
     Active Substance: SUNITINIB MALATE
     Dosage: 3.75 MG, P.D.
     Route: 048
  3. SUTENT [Suspect]
     Active Substance: SUNITINIB MALATE
     Dosage: 37.5 MG, DAILY FOR 28 DAYS/ 42 DAY CYCLE, DURATION: INDEFINITE
     Route: 048
  4. SUTENT [Suspect]
     Active Substance: SUNITINIB MALATE
     Dosage: 37.5 MG, DAILY FOR 28 DAYS/ 42 DAY CYCLE, DURATION: INDEFINITE
     Route: 048
     Dates: start: 20220124

REACTIONS (4)
  - Upper limb fracture [Not Recovered/Not Resolved]
  - Impaired healing [Not Recovered/Not Resolved]
  - Product dose omission issue [Unknown]
  - Treatment noncompliance [Unknown]
